FAERS Safety Report 4436544-6 (Version None)
Quarter: 2004Q3

REPORT INFORMATION
  Report Type: 
  Country: None (occurrence: None)
  Receive Date: 20040830
  Receipt Date: 20040618
  Transmission Date: 20050211
  Serious: No
  Sender: FDA-Public Use
  Company Number: US-BRISTOL-MYERS SQUIBB COMPANY-12620142

PATIENT
  Sex: Female

DRUGS (3)
  1. ABILIFY [Suspect]
     Indication: ATTENTION DEFICIT/HYPERACTIVITY DISORDER
     Dosage: 10MG, 1/2 TABLET TAKEN IN THE EVENING FOR 3 TO 4 DAYS IN NOV-2003 OR DEC-2003
     Route: 048
  2. SYNTHROID [Concomitant]
  3. MULTI-VITAMIN [Concomitant]

REACTIONS (1)
  - DISSOCIATION [None]
